FAERS Safety Report 8569426-9 (Version None)
Quarter: 2012Q3

REPORT INFORMATION
  Report Type: 
  Country: None (occurrence: None)
  Receive Date: 20120803
  Receipt Date: 20120227
  Transmission Date: 20120928
  Serious: No
  Sender: FDA-Public Use
  Company Number: US-ABBOTT-12P-163-0909196-00

PATIENT
  Sex: Female

DRUGS (2)
  1. NIASPAN [Suspect]
     Dosage: 1 IN 1 AT BEDTIME
     Dates: start: 20120101, end: 20120224
  2. NIASPAN [Suspect]
     Indication: BLOOD CHOLESTEROL INCREASED
     Dosage: 1 IN 1 AT BEDTIME
     Dates: start: 20120225

REACTIONS (1)
  - HEADACHE [None]
